FAERS Safety Report 4441893-1 (Version None)
Quarter: 2004Q3

REPORT INFORMATION
  Report Type: 
  Country: None (occurrence: None)
  Receive Date: 20040901
  Receipt Date: 20040819
  Transmission Date: 20050211
  Serious: Yes (Other)
  Sender: FDA-Public Use
  Company Number: 2004229485BE

PATIENT
  Age: 71 Year
  Sex: Male

DRUGS (1)
  1. ESTRACYT (ESTRAMUSTINE PHOSPHATE) POWDER, STERILE [Suspect]
     Indication: PROSTATE CANCER
     Dosage: SINGLE, INTRAMUSCULAR
     Route: 030
     Dates: start: 20040818, end: 20040818

REACTIONS (3)
  - DIFFICULTY IN WALKING [None]
  - INJECTION SITE PAIN [None]
  - MEDICATION ERROR [None]
